FAERS Safety Report 5701810-0 (Version None)
Quarter: 2008Q2

REPORT INFORMATION
  Report Type: 
  Country: None (occurrence: None)
  Receive Date: 20080408
  Receipt Date: 20080402
  Transmission Date: 20081010
  Serious: Yes (Death, Hospitalization)
  Sender: FDA-Public Use
  Company Number: 163-21880-08021562

PATIENT
  Age: 51 Year
  Sex: Male

DRUGS (8)
  1. REVLIMID [Suspect]
     Indication: CHRONIC LYMPHOCYTIC LEUKAEMIA
     Dosage: 10 MG, 2 IN 1 D, ORAL
     Route: 048
     Dates: start: 20070907, end: 20071207
  2. ZOFRAN [Concomitant]
  3. LAXATIVES (LAXATIVES) [Concomitant]
  4. PROTONIX [Concomitant]
  5. ALBUTEROL [Concomitant]
  6. AMOXICILLIN WITH CLAVULANATE POTASSIUM (AMOXICILLIN W/CLAVULANATE POTA [Concomitant]
  7. IPRATROPIUM BROMIDE [Concomitant]
  8. POLYETHYLENE GLYCOL (MACROGOL) [Concomitant]

REACTIONS (13)
  - ABSCESS [None]
  - ATELECTASIS [None]
  - CHRONIC LYMPHOCYTIC LEUKAEMIA [None]
  - INFECTION [None]
  - LUNG NEOPLASM [None]
  - MALIGNANT NEOPLASM PROGRESSION [None]
  - PATHOLOGICAL FRACTURE [None]
  - PLEURAL EFFUSION [None]
  - PNEUMONIA [None]
  - PNEUMONIA FUNGAL [None]
  - RIB FRACTURE [None]
  - STAPHYLOCOCCAL BACTERAEMIA [None]
  - THROMBOCYTOPENIA [None]
